FAERS Safety Report 9746511 (Version 2)
Quarter: 2014Q1

REPORT INFORMATION
  Report Type: Spontaneous
  Country: US (occurrence: US)
  Receive Date: 20131211
  Receipt Date: 20140307
  Transmission Date: 20141002
  Serious: Yes (Hospitalization, Other)
  Sender: FDA-Public Use
  Company Number: US-GILEAD-2013-0089493

PATIENT
  Age: 52 Year
  Sex: Male

DRUGS (3)
  1. LETAIRIS [Suspect]
     Indication: PULMONARY HYPERTENSION
     Dosage: 5 MG, QD
     Dates: start: 20131108
  2. LETAIRIS [Suspect]
     Indication: PULMONARY HYPERTENSION
  3. RIOCIGUAT [Concomitant]

REACTIONS (3)
  - Loss of consciousness [Unknown]
  - Catheterisation cardiac [Unknown]
  - Oedema peripheral [Unknown]
